FAERS Safety Report 9421884 (Version 1)
Quarter: 2013Q3

REPORT INFORMATION
  Report Type: Spontaneous
  Country: US (occurrence: None)
  Receive Date: 20130724
  Receipt Date: 20130724
  Transmission Date: 20140515
  Serious: Yes (Life-Threatening)
  Sender: FDA-Public Use
  Company Number: None

PATIENT
  Age: 49 Year
  Sex: Male
  Weight: 119.3 kg

DRUGS (8)
  1. CIMZIA [Suspect]
     Indication: CROHN^S DISEASE
     Dosage: 400 MG Q4WK SUBQ
  2. METFORMIN [Concomitant]
  3. NOVOLOG [Concomitant]
  4. ZOLOFT [Concomitant]
  5. TEMAZEPAM [Concomitant]
  6. FENTANYL [Concomitant]
  7. PREVACID [Concomitant]
  8. TRAMADOL [Concomitant]

REACTIONS (5)
  - Hepatitis C [None]
  - Disease progression [None]
  - Portal hypertension [None]
  - Fibrosis [None]
  - Hepatic cirrhosis [None]
